FAERS Safety Report 15314168 (Version 5)
Quarter: 2018Q4

REPORT INFORMATION
  Report Type: Report from Study
  Country: None (occurrence: US)
  Receive Date: 20180824
  Receipt Date: 20181219
  Transmission Date: 20190204
  Serious: Yes (Other)
  Sender: FDA-Public Use
  Company Number: US-ABBVIE-18K-163-2297913-00

PATIENT
  Age: 68 Year
  Sex: Female

DRUGS (1)
  1. HUMIRA [Suspect]
     Active Substance: ADALIMUMAB
     Indication: PSORIASIS
     Route: 058

REACTIONS (15)
  - Macular degeneration [Not Recovered/Not Resolved]
  - Joint swelling [Unknown]
  - Psoriasis [Recovered/Resolved]
  - Therapeutic response shortened [Not Recovered/Not Resolved]
  - Cardiac flutter [Recovering/Resolving]
  - Arrhythmia [Recovering/Resolving]
  - Psoriasis [Recovering/Resolving]
  - Pain in extremity [Not Recovered/Not Resolved]
  - Stress [Unknown]
  - Procedural hypertension [Unknown]
  - Psoriatic arthropathy [Unknown]
  - Peripheral swelling [Recovered/Resolved]
  - Dyspnoea [Unknown]
  - Heart rate increased [Recovered/Resolved]
  - Arrhythmia [Recovered/Resolved]

NARRATIVE: CASE EVENT DATE: 2018
